FAERS Safety Report 7501651-8 (Version None)
Quarter: 2011Q2

REPORT INFORMATION
  Report Type: 
  Country: None (occurrence: None)
  Receive Date: 20110524
  Receipt Date: 20110512
  Transmission Date: 20111010
  Serious: Yes (Other)
  Sender: FDA-Public Use
  Company Number: CH-ELI_LILLY_AND_COMPANY-CH201105004689

PATIENT
  Age: 40 Year
  Sex: Female

DRUGS (4)
  1. ACETAMINOPHEN [Concomitant]
     Dosage: UNK, OTHER
  2. ZYPREXA [Suspect]
     Dosage: 5 MG, UNK
  3. TRANXILIUM [Concomitant]
     Dosage: 5 MG, QD
  4. CITALOPRAM HYDROBROMIDE [Concomitant]
     Dosage: 20 MG, QD

REACTIONS (1)
  - DRUG EXPOSURE DURING PREGNANCY [None]
